FAERS Safety Report 14959494 (Version 1)
Quarter: 2018Q2

REPORT INFORMATION
  Report Type: Spontaneous
  Country: JP (occurrence: JP)
  Receive Date: 20180531
  Receipt Date: 20180531
  Transmission Date: 20180711
  Serious: Yes (Other)
  Sender: FDA-Public Use
  Company Number: JP-SPECTRUM PHARMACEUTICALS, INC.-17-F-JP-00448

PATIENT
  Age: 75 Year
  Sex: Female

DRUGS (1)
  1. FOLOTYN [Suspect]
     Active Substance: PRALATREXATE
     Indication: ENTEROPATHY-ASSOCIATED T-CELL LYMPHOMA
     Dosage: UNK
     Route: 042
     Dates: start: 20171205

REACTIONS (2)
  - Stomatitis [Not Recovered/Not Resolved]
  - Disease progression [Unknown]

NARRATIVE: CASE EVENT DATE: 20171209
